FAERS Safety Report 19177482 (Version 1)
Quarter: 2021Q2

REPORT INFORMATION
  Report Type: Spontaneous
  Country: US (occurrence: US)
  Receive Date: 20210424
  Receipt Date: 20210424
  Transmission Date: 20210717
  Serious: Yes (Life-Threatening, Other)
  Sender: FDA-Public Use
  Company Number: None

PATIENT
  Age: 41 Year
  Sex: Male
  Weight: 89.81 kg

DRUGS (4)
  1. IMDEVIMAB. [Concomitant]
     Active Substance: IMDEVIMAB
     Dates: start: 20210422, end: 20210422
  2. CASIRIVIMAB. [Concomitant]
     Active Substance: CASIRIVIMAB
     Dates: start: 20210422, end: 20210422
  3. CASIRIVIMAB/IMDEVIMAB [Suspect]
     Active Substance: CASIRIVIMAB\IMDEVIMAB
     Indication: COVID-19
     Route: 042
     Dates: start: 20210422, end: 20210422
  4. IMDEVIMAB. [Suspect]
     Active Substance: IMDEVIMAB
     Indication: COVID-19
     Route: 040
     Dates: start: 20210422, end: 20210422

REACTIONS (6)
  - Infusion related reaction [None]
  - Stridor [None]
  - Throat tightness [None]
  - Wheezing [None]
  - Swollen tongue [None]
  - Abdominal pain [None]

NARRATIVE: CASE EVENT DATE: 20210422
